FAERS Safety Report 5833432-5 (Version None)
Quarter: 2008Q3

REPORT INFORMATION
  Report Type: 
  Country: None (occurrence: None)
  Receive Date: 20080731
  Receipt Date: 20080716
  Transmission Date: 20090109
  Serious: Yes (Hospitalization)
  Sender: FDA-Public Use
  Company Number: 2008AL003412

PATIENT
  Age: 66 Year
  Sex: Female
  Weight: 77.1115 kg

DRUGS (9)
  1. DIGOXIN [Suspect]
     Indication: CARDIAC FAILURE CONGESTIVE
     Dosage: 0.25 MG, DAILY, PO
     Route: 048
  2. DIGOXIN [Suspect]
     Indication: VENTRICULAR ARRHYTHMIA
     Dosage: 0.125 MG, DAILY, PO
     Route: 048
     Dates: start: 20041004, end: 20071001
  3. COREG [Concomitant]
  4. LISINOPRIL [Concomitant]
  5. ALDACTONE [Concomitant]
  6. INSULIN [Concomitant]
  7. CELEXA [Concomitant]
  8. HYDROCHLOROTHIAZIDE [Concomitant]
  9. NOVOLIN 70/30 [Concomitant]

REACTIONS (15)
  - ANAEMIA [None]
  - ASTHENIA [None]
  - BLOOD GLUCOSE INCREASED [None]
  - BUNDLE BRANCH BLOCK LEFT [None]
  - DYSPNOEA [None]
  - FATIGUE [None]
  - HEADACHE [None]
  - HEART RATE INCREASED [None]
  - LEFT VENTRICULAR HYPERTROPHY [None]
  - MITRAL VALVE INCOMPETENCE [None]
  - MOVEMENT DISORDER [None]
  - NAUSEA [None]
  - THERAPEUTIC AGENT TOXICITY [None]
  - TRICUSPID VALVE INCOMPETENCE [None]
  - VENTRICULAR EXTRASYSTOLES [None]
